FAERS Safety Report 17580583 (Version 1)
Quarter: 2020Q1

REPORT INFORMATION
  Report Type: Spontaneous
  Country: US (occurrence: US)
  Receive Date: 20200325
  Receipt Date: 20200325
  Transmission Date: 20200409
  Serious: No
  Sender: FDA-Public Use
  Company Number: US-KVK-TECH, INC-2081951

PATIENT
  Sex: Female

DRUGS (1)
  1. BUTALBITAL, ACETAMINOPHEN, AND CAFFEINE [Suspect]
     Active Substance: ACETAMINOPHEN\BUTALBITAL\CAFFEINE
     Indication: MIGRAINE
     Dates: start: 20200216

REACTIONS (5)
  - Eructation [Unknown]
  - Abdominal pain upper [Unknown]
  - Drug ineffective [Unknown]
  - Malaise [Unknown]
  - Intentional product use issue [Unknown]

NARRATIVE: CASE EVENT DATE: 20200216
